FAERS Safety Report 20378450 (Version 1)
Quarter: 2022Q1

REPORT INFORMATION
  Report Type: Spontaneous
  Country: US (occurrence: None)
  Receive Date: 20220125
  Receipt Date: 20220125
  Transmission Date: 20220423
  Serious: Yes (Life-Threatening, Hospitalization)
  Sender: FDA-Public Use
  Company Number: None

PATIENT
  Age: 64 Year
  Sex: Female
  Weight: 136.6 kg

DRUGS (6)
  1. TOCILIZUMAB [Suspect]
     Active Substance: TOCILIZUMAB
     Indication: COVID-19
     Dosage: FREQUENCY : ONCE;?
     Route: 042
     Dates: start: 20220114
  2. DEXAMETHASONE [Concomitant]
     Active Substance: DEXAMETHASONE
     Dates: start: 20220113, end: 20220122
  3. CEFTRIAXONE [Concomitant]
     Active Substance: CEFTRIAXONE
     Dates: start: 20220120, end: 20220124
  4. CEFEPIME [Concomitant]
     Active Substance: CEFEPIME HYDROCHLORIDE
  5. MICAFUNGIN [Concomitant]
     Active Substance: MICAFUNGIN
     Dates: start: 20220123
  6. VANCOMYCIN [Concomitant]
     Active Substance: VANCOMYCIN
     Dates: start: 20220120

REACTIONS (10)
  - White blood cell count increased [None]
  - Streptobacillus test positive [None]
  - Klebsiella test positive [None]
  - Tracheal aspirate culture [None]
  - Pneumonia staphylococcal [None]
  - Pneumonia klebsiella [None]
  - Culture urine positive [None]
  - Staphylococcal infection [None]
  - Pneumothorax [None]
  - Candida infection [None]

NARRATIVE: CASE EVENT DATE: 20220123
